FAERS Safety Report 6658150-5 (Version None)
Quarter: 2010Q1

REPORT INFORMATION
  Report Type: 
  Country: None (occurrence: None)
  Receive Date: 20100330
  Receipt Date: 20100323
  Transmission Date: 20100710
  Serious: Yes (Other)
  Sender: FDA-Public Use
  Company Number: A0852249A

PATIENT
  Sex: Male

DRUGS (2)
  1. SERETIDE [Suspect]
     Indication: ASTHMA
     Route: 055
  2. COMBIVENT [Concomitant]
     Dosage: 2PUFF PER DAY
     Dates: start: 20090501

REACTIONS (2)
  - ASTHMATIC CRISIS [None]
  - OVERDOSE [None]
